FAERS Safety Report 4881886-3 (Version None)
Quarter: 2006Q1

REPORT INFORMATION
  Report Type: 
  Country: None (occurrence: None)
  Receive Date: 20060111
  Receipt Date: 20060111
  Transmission Date: 20060701
  Serious: Yes (Hospitalization)
  Sender: FDA-Public Use
  Company Number: None

PATIENT
  Age: 57 Year
  Sex: Male
  Weight: 64.4 kg

DRUGS (1)
  1. EPZICOM [Suspect]
     Indication: HIV INFECTION
     Dosage: 600/300, QD, ORAL
     Route: 048
     Dates: start: 20050920, end: 20051011

REACTIONS (4)
  - HEPATIC ENZYME INCREASED [None]
  - MYALGIA [None]
  - PYREXIA [None]
  - RASH [None]
